FAERS Safety Report 8168824-5 (Version None)
Quarter: 2012Q1

REPORT INFORMATION
  Report Type: 
  Country: None (occurrence: None)
  Receive Date: 20120227
  Receipt Date: 20120221
  Transmission Date: 20120608
  Serious: Yes (Other)
  Sender: FDA-Public Use
  Company Number: CHPA2012US001761

PATIENT
  Age: 50 Year
  Sex: Female

DRUGS (3)
  1. DRUG THERAPY NOS [Concomitant]
     Indication: HORMONE REPLACEMENT THERAPY
     Dosage: UNK, UNK
  2. DRUG THERAPY NOS [Concomitant]
     Indication: MIGRAINE
     Dosage: UNK, UNK
  3. EXCEDRIN EXTRA STRENGTH TABLETS [Suspect]
     Indication: HEADACHE
     Dosage: 2-6 DF, A DAY
     Route: 048

REACTIONS (5)
  - OSTEOPOROSIS [None]
  - DRUG INEFFECTIVE [None]
  - BLOOD COUNT ABNORMAL [None]
  - BREAST CANCER [None]
  - DRUG WITHDRAWAL SYNDROME [None]
